FAERS Safety Report 8017799-8 (Version None)
Quarter: 2012Q1

REPORT INFORMATION
  Report Type: 
  Country: None (occurrence: None)
  Receive Date: 20120103
  Receipt Date: 20111229
  Transmission Date: 20120608
  Serious: No
  Sender: FDA-Public Use
  Company Number: US-PFIZER INC-2011274990

PATIENT
  Sex: Female
  Weight: 70.3 kg

DRUGS (6)
  1. GENOTROPIN [Interacting]
     Indication: GROWTH HORMONE DEFICIENCY
  2. COUMADIN [Interacting]
     Indication: CEREBROVASCULAR ACCIDENT
     Dosage: UNK
  3. GENOTROPIN [Suspect]
     Indication: HYPOPITUITARISM
     Dosage: 0.2 MG, UNK
     Route: 058
     Dates: start: 20110201, end: 20110901
  4. VITAMIN D [Concomitant]
     Dosage: 50000 IU, WEEKLY
  5. SYNTHROID [Interacting]
     Indication: HYPOTHYROIDISM
     Dosage: 88 UG, 1X/DAY
     Route: 048
  6. CORTEF [Concomitant]
     Indication: ADRENAL INSUFFICIENCY
     Dosage: 10 MG, 2X/DAY

REACTIONS (3)
  - DRUG INTERACTION [None]
  - BLOOD TEST ABNORMAL [None]
  - INTERNATIONAL NORMALISED RATIO ABNORMAL [None]
